FAERS Safety Report 8217478-8 (Version None)
Quarter: 2012Q1

REPORT INFORMATION
  Report Type: 
  Country: None (occurrence: None)
  Receive Date: 20120301
  Receipt Date: 20111220
  Transmission Date: 20120608
  Serious: Yes (Other)
  Sender: FDA-Public Use
  Company Number: 304504USA

PATIENT
  Sex: Male

DRUGS (1)
  1. DONEPEZIL HCL [Suspect]
     Dosage: 10 MG

REACTIONS (4)
  - AMNESIA [None]
  - DYSPNOEA [None]
  - IMPAIRED WORK ABILITY [None]
  - DRUG INEFFECTIVE [None]
